FAERS Safety Report 6989916-X (Version None)
Quarter: 2010Q3

REPORT INFORMATION
  Report Type: 
  Country: None (occurrence: None)
  Receive Date: 20100916
  Receipt Date: 20100402
  Transmission Date: 20110219
  Serious: Yes (Other)
  Sender: FDA-Public Use
  Company Number: US-PFIZER INC-2010025151

PATIENT
  Sex: Female
  Weight: 113.39 kg

DRUGS (1)
  1. LYRICA [Suspect]
     Indication: NEURALGIA
     Dosage: 300 MG, 2X/DAY
     Route: 048

REACTIONS (6)
  - HAEMATOCRIT INCREASED [None]
  - HAEMOGLOBIN INCREASED [None]
  - HEPATIC ENZYME INCREASED [None]
  - MEAN CELL VOLUME INCREASED [None]
  - PLATELET COUNT DECREASED [None]
  - RED CELL DISTRIBUTION WIDTH INCREASED [None]
